FAERS Safety Report 8777374 (Version 2)
Quarter: 2012Q4

REPORT INFORMATION
  Report Type: 
  Country: US (occurrence: US)
  Receive Date: 20120911
  Receipt Date: 20121102
  Transmission Date: 20130627
  Serious: Yes (Disabling)
  Sender: FDA-Public Use
  Company Number: US-PFIZER INC-2012219935

PATIENT
  Sex: Female
  Weight: 125 kg

DRUGS (5)
  1. DETROL LA [Suspect]
     Indication: URINARY INCONTINENCE
     Dosage: 4 mg, daily
     Dates: start: 2004, end: 2012
  2. LOSARTAN POTASSIUM [Concomitant]
     Indication: BLOOD PRESSURE HIGH
     Dosage: 100 mg, daily
  3. BISOPROLOL FUMARATE/HYDROCHLOROTHIAZIDE [Concomitant]
     Indication: BLOOD PRESSURE HIGH
     Dosage: 5.2 mg, daily
  4. ZOLPIDEM TARTRATE [Concomitant]
     Indication: INSOMNIA
     Dosage: 12.5 mg, daily
  5. FOLIC ACID [Concomitant]
     Dosage: UNK, daily

REACTIONS (1)
  - Osteoarthritis [Not Recovered/Not Resolved]
